FAERS Safety Report 7590910-9 (Version None)
Quarter: 2011Q3

REPORT INFORMATION
  Report Type: 
  Country: None (occurrence: None)
  Receive Date: 20110705
  Receipt Date: 20110627
  Transmission Date: 20111222
  Serious: Yes (Other)
  Sender: FDA-Public Use
  Company Number: PHFR2011GB02722

PATIENT
  Sex: Female

DRUGS (6)
  1. SIMVASTATIN [Concomitant]
     Dosage: 20 MG, DAILY
     Dates: start: 20080111
  2. LANSOPRAZOLE [Concomitant]
     Dosage: 30 MG, DAILY
     Dates: start: 20080111
  3. CLOZAPINE [Suspect]
     Dosage: 400 MG, DAILY
     Route: 048
     Dates: start: 20080111
  4. FLUOXETINE HCL [Concomitant]
     Dosage: 20 MG, DAILY
     Dates: start: 20080111
  5. AMILORIDE HYDROCHLORIDE [Concomitant]
     Dosage: 20 MG, DAILY
     Dates: start: 20080111
  6. CLOZAPINE [Suspect]
     Indication: SCHIZOPHRENIA
     Route: 048
     Dates: start: 20051219

REACTIONS (2)
  - ANTIPSYCHOTIC DRUG LEVEL INCREASED [None]
  - LOWER RESPIRATORY TRACT INFECTION [None]
